FAERS Safety Report 6557191-6 (Version None)
Quarter: 2010Q1

REPORT INFORMATION
  Report Type: 
  Country: None (occurrence: None)
  Receive Date: 20100127
  Receipt Date: 20100127
  Transmission Date: 20100710
  Serious: Yes (Death)
  Sender: FDA-Public Use
  Company Number: None

PATIENT

DRUGS (1)
  1. CHANTIX [Suspect]

REACTIONS (7)
  - ABNORMAL BEHAVIOUR [None]
  - DEPRESSION [None]
  - GUN SHOT WOUND [None]
  - HALLUCINATION [None]
  - INTENTIONAL SELF-INJURY [None]
  - MOTOR DYSFUNCTION [None]
  - NIGHTMARE [None]
